FAERS Safety Report 16049793 (Version 3)
Quarter: 2020Q1

REPORT INFORMATION
  Report Type: Spontaneous
  Country: US (occurrence: US)
  Receive Date: 20190307
  Receipt Date: 20200128
  Transmission Date: 20200409
  Serious: Yes (Other)
  Sender: FDA-Public Use
  Company Number: US-PFIZER INC-2017315449

PATIENT
  Age: 9 Year
  Sex: Female

DRUGS (8)
  1. GENOTROPIN [Suspect]
     Active Substance: SOMATROPIN
     Dosage: 1 MG, UNK(ALTERNATING DOSE OF 1MG AND 1.2MG)
     Dates: start: 20160420
  2. GENOTROPIN [Suspect]
     Active Substance: SOMATROPIN
     Indication: GROWTH HORMONE DEFICIENCY
     Dosage: 1.0 MG, UNK (1.0MG AND 1.2MG; DAILY INJECTION WITH DOSE GOING BACK AND FORTH BETWEEN 1.0MG AND 1.2M)
     Dates: start: 2015
  3. GENOTROPIN [Suspect]
     Active Substance: SOMATROPIN
     Dosage: 1.2 MG, UNK (1.0MG AND 1.2MG; DAILY INJECTION WITH DOSE GOING BACK AND FORTH BETWEEN 1.0MG AND 1.2M)
     Dates: start: 2015
  4. HYDROCORTISONE. [Concomitant]
     Active Substance: HYDROCORTISONE
     Dosage: 5 MG, 2X/DAY
     Route: 048
     Dates: start: 2013
  5. GENOTROPIN [Suspect]
     Active Substance: SOMATROPIN
     Dosage: 1.2 MG, UNK(ALTERNATING DOSE OF 1MG AND 1.2MG)
     Dates: start: 20160420
  6. GENOTROPIN [Suspect]
     Active Substance: SOMATROPIN
     Dosage: 2 MG, 1X/DAY
     Dates: start: 201603
  7. LEVOTHYROXINE. [Concomitant]
     Active Substance: LEVOTHYROXINE
     Dosage: 0.075 MG, 1X/DAY, IN THE MORNING
     Dates: start: 2013
  8. DESMOPRESSIN [Concomitant]
     Active Substance: DESMOPRESSIN
     Indication: POLLAKIURIA
     Dosage: 0.1 MG, 1X/DAY
     Dates: start: 2013

REACTIONS (3)
  - Device breakage [Unknown]
  - Seizure [Unknown]
  - Product dose omission [Unknown]

NARRATIVE: CASE EVENT DATE: 20170715
